FAERS Safety Report 17689118 (Version 3)
Quarter: 2020Q3

REPORT INFORMATION
  Report Type: Report from Study
  Country: US (occurrence: US)
  Receive Date: 20200421
  Receipt Date: 20200911
  Transmission Date: 20201102
  Serious: Yes (Death, Hospitalization)
  Sender: FDA-Public Use
  Company Number: US-ROCHE-2586169

PATIENT
  Age: 67 Year
  Sex: Male
  Weight: 91.7 kg

DRUGS (3)
  1. OBINUTUZUMAB. [Suspect]
     Active Substance: OBINUTUZUMAB
     Indication: CHRONIC LYMPHOCYTIC LEUKAEMIA
     Dosage: OBINUTUZUMAB IV OVER 4 HOURS ON DAYS 1, 2, 8, AND 15 OF COURSE 1 AND ON DAY 1 OF COURSES 2?6. 100 M
     Route: 042
     Dates: start: 20190709
  2. IBRUTINIB [Suspect]
     Active Substance: IBRUTINIB
     Indication: CHRONIC LYMPHOCYTIC LEUKAEMIA
     Dosage: 420 MG PO QD ON DAYS 1?28 ON 17/DEC/2019, HE RECEIVED LAST TREATMENT WITH IBRUTINIB (420 MG).
     Route: 048
     Dates: start: 20190709
  3. L?THYROXINE [Concomitant]
     Active Substance: LEVOTHYROXINE

REACTIONS (3)
  - Pneumonia [Recovering/Resolving]
  - Pyrexia [Unknown]
  - Strongyloidiasis [Fatal]

NARRATIVE: CASE EVENT DATE: 20190731
